FAERS Safety Report 15860020 (Version 1)
Quarter: 2019Q1

REPORT INFORMATION
  Report Type: Spontaneous
  Country: FR (occurrence: FR)
  Receive Date: 20190123
  Receipt Date: 20190123
  Transmission Date: 20190417
  Serious: Yes (Hospitalization)
  Sender: FDA-Public Use
  Company Number: FR-MYLANLABS-2019M1006031

PATIENT
  Age: 88 Year
  Sex: Female

DRUGS (2)
  1. ALPRAZOLAM. [Suspect]
     Active Substance: ALPRAZOLAM
     Indication: ANXIETY DISORDER
     Dosage: UNK
     Route: 048
     Dates: start: 20180511, end: 20180530
  2. MIANSERIN [Suspect]
     Active Substance: MIANSERIN
     Indication: ANXIETY DISORDER
     Dosage: UNK
     Route: 048
     Dates: start: 20180430

REACTIONS (1)
  - Cholestasis [Recovering/Resolving]

NARRATIVE: CASE EVENT DATE: 20180529
